FAERS Safety Report 4533567-3 (Version None)
Quarter: 2004Q4

REPORT INFORMATION
  Report Type: 
  Country: None (occurrence: None)
  Receive Date: 20041210
  Receipt Date: 20040819
  Transmission Date: 20050328
  Serious: Yes (Other)
  Sender: FDA-Public Use
  Company Number: A03200403011

PATIENT
  Sex: Female

DRUGS (2)
  1. ELOXATIN [Suspect]
     Dosage: INTRAVENOUSNOS
     Route: 042
     Dates: start: 20040818, end: 20040818
  2. FLUOROURACIL [Concomitant]

REACTIONS (3)
  - INJECTION SITE BURNING [None]
  - INJECTION SITE EXTRAVASATION [None]
  - INJECTION SITE REACTION [None]
